FAERS Safety Report 14806045 (Version 1)
Quarter: 2018Q2

REPORT INFORMATION
  Report Type: Report from Study
  Country: US (occurrence: US)
  Receive Date: 20180425
  Receipt Date: 20180425
  Transmission Date: 20180711
  Serious: No
  Sender: FDA-Public Use
  Company Number: PHEH2018US014353

PATIENT
  Age: 32 Year
  Sex: Male
  Weight: 77.98 kg

DRUGS (3)
  1. TAVIST-D [Concomitant]
     Active Substance: CLEMASTINE FUMARATE\PHENYLPROPANOLAMINE HYDROCHLORIDE
     Indication: PRODUCT USED FOR UNKNOWN INDICATION
     Route: 065
  2. GLATOPA [Suspect]
     Active Substance: GLATIRAMER ACETATE
     Indication: MULTIPLE SCLEROSIS
     Dosage: 20 MG, QD
     Route: 058
     Dates: start: 20180406
  3. VITAMIN D [Concomitant]
     Active Substance: CHOLECALCIFEROL
     Indication: PRODUCT USED FOR UNKNOWN INDICATION
     Route: 065

REACTIONS (6)
  - Tremor [Recovered/Resolved]
  - Chills [Recovered/Resolved]
  - Pyrexia [Recovered/Resolved]
  - Nasopharyngitis [Recovered/Resolved]
  - Pain [Recovered/Resolved]
  - Fatigue [Recovered/Resolved]

NARRATIVE: CASE EVENT DATE: 20180409
